FAERS Safety Report 5035626-8 (Version None)
Quarter: 2006Q2

REPORT INFORMATION
  Report Type: 
  Country: None (occurrence: None)
  Receive Date: 20060627
  Receipt Date: 20060608
  Transmission Date: 20061013
  Serious: Yes (Hospitalization)
  Sender: FDA-Public Use
  Company Number: AT-GLAXOSMITHKLINE-B0427278A

PATIENT
  Sex: Male
  Weight: 80 kg

DRUGS (2)
  1. LAMOTRIGINE [Suspect]
     Indication: EPILEPSY
     Dosage: 25MG PER DAY
     Route: 048
     Dates: start: 20060605, end: 20060609
  2. LEVETIRACETAM [Concomitant]
     Dosage: 1000MG THREE TIMES PER DAY

REACTIONS (1)
  - BLOOD CREATINE PHOSPHOKINASE INCREASED [None]
